FAERS Safety Report 17423569 (Version 1)
Quarter: 2020Q1

REPORT INFORMATION
  Report Type: Spontaneous
  Country: DE (occurrence: DE)
  Receive Date: 20200217
  Receipt Date: 20200217
  Transmission Date: 20200409
  Serious: Yes (Hospitalization)
  Sender: FDA-Public Use
  Company Number: DE-ROCHE-2549589

PATIENT
  Age: 63 Year
  Sex: Female
  Weight: 75 kg

DRUGS (7)
  1. EDOXABAN [Concomitant]
     Active Substance: EDOXABAN TOSYLATE
     Indication: FACTOR V LEIDEN CARRIER
     Route: 048
     Dates: start: 201812
  2. MELISSA OFFICINALIS;VALERIANA OFFICINALIS [Concomitant]
     Indication: SLEEP DISORDER
     Route: 048
     Dates: start: 2019
  3. DENOSUMAB [Concomitant]
     Active Substance: DENOSUMAB
     Dosage: DAILY DOSE: 120 MG MILLGRAM(S) EVERY 4 WEEKS
     Route: 030
     Dates: start: 201810
  4. THIAMAZOLE [Concomitant]
     Active Substance: METHIMAZOLE
     Indication: HYPERTHYROIDISM
     Route: 048
     Dates: start: 2017
  5. AVASTIN [Suspect]
     Active Substance: BEVACIZUMAB
     Indication: BREAST CANCER
     Route: 042
     Dates: start: 201810, end: 20191209
  6. LERCANIDIPINE [Concomitant]
     Active Substance: LERCANIDIPINE
     Indication: HYPERTENSION
     Route: 048
     Dates: start: 2018
  7. FOLSAN [Concomitant]
     Active Substance: FOLIC ACID
     Indication: PROPHYLAXIS
     Route: 048
     Dates: start: 2018

REACTIONS (3)
  - Vasculitis [Not Recovered/Not Resolved]
  - Aortitis [Not Recovered/Not Resolved]
  - Acute phase reaction [Not Recovered/Not Resolved]

NARRATIVE: CASE EVENT DATE: 20190601
